FAERS Safety Report 8508073-1 (Version None)
Quarter: 2012Q3

REPORT INFORMATION
  Report Type: 
  Country: None (occurrence: None)
  Receive Date: 20120713
  Receipt Date: 20120705
  Transmission Date: 20120928
  Serious: Yes (Hospitalization)
  Sender: FDA-Public Use
  Company Number: FR-EISAI INC-E3810-05670-SPO-FR

PATIENT
  Sex: Male
  Weight: 110 kg

DRUGS (14)
  1. PLAVIX [Suspect]
     Indication: MYOCARDIAL INFARCTION
     Route: 048
     Dates: start: 20120523, end: 20120616
  2. RAMIPRIL [Concomitant]
     Dates: start: 20120524
  3. REOPRO [Suspect]
     Indication: MYOCARDIAL INFARCTION
     Route: 022
     Dates: start: 20120523, end: 20120523
  4. DILTIAZEM HCL [Concomitant]
     Route: 013
     Dates: start: 20120523
  5. OMACOR [Concomitant]
  6. NITROGLYCERIN [Concomitant]
  7. RABEPRAZOLE SODIUM [Suspect]
     Route: 048
     Dates: start: 20120501, end: 20120616
  8. ASPIRIN [Concomitant]
     Dates: start: 20120523
  9. BISOPROLOL FUMARATE [Concomitant]
     Dates: start: 20120524
  10. KRENOSIN [Concomitant]
     Route: 022
     Dates: start: 20120523
  11. MORPHINE [Concomitant]
     Route: 042
     Dates: start: 20120523
  12. ATORVASTATIN [Concomitant]
  13. ISOSORBIDE DINITRATE [Concomitant]
     Route: 022
     Dates: start: 20120523
  14. VISIPAQUE [Concomitant]
     Dates: start: 20120523

REACTIONS (1)
  - AUTOIMMUNE THROMBOCYTOPENIA [None]
